FAERS Safety Report 8831154 (Version 2)
Quarter: 2012Q4

REPORT INFORMATION
  Report Type: 
  Country: DE (occurrence: DE)
  Receive Date: 20121009
  Receipt Date: 20121026
  Transmission Date: 20130627
  Serious: Yes (Hospitalization)
  Sender: FDA-Public Use
  Company Number: DE-PFIZER INC-2012237144

PATIENT
  Age: 70 Year
  Sex: Male
  Weight: 85 kg

DRUGS (1)
  1. SUTENT [Suspect]
     Indication: METASTATIC RENAL CELL CARCINOMA
     Dosage: 37.5 (units unspecified)
     Route: 048
     Dates: start: 20120829, end: 20120920

REACTIONS (3)
  - Pyrexia [Recovered/Resolved]
  - Influenza [Unknown]
  - Transaminases increased [Recovered/Resolved]
